FAERS Safety Report 22306714 (Version 4)
Quarter: 2024Q2

REPORT INFORMATION
  Report Type: Spontaneous
  Country: CA (occurrence: CA)
  Receive Date: 20230511
  Receipt Date: 20240412
  Transmission Date: 20240715
  Serious: Yes (Hospitalization, Other)
  Sender: FDA-Public Use
  Company Number: CA-BAXTER-2023BAX021139

PATIENT
  Age: 62 Year
  Sex: Female

DRUGS (12)
  1. DOXORUBICIN [Suspect]
     Active Substance: DOXORUBICIN
     Indication: Plasma cell myeloma refractory
     Dosage: UNK (DOSAGE FORM: NOT SPECIFIED)
     Route: 065
     Dates: start: 20230310
  2. CYCLOPHOSPHAMIDE [Suspect]
     Active Substance: CYCLOPHOSPHAMIDE
     Indication: Plasma cell myeloma refractory
     Dosage: UNK
     Route: 065
     Dates: start: 20230310
  3. CYCLOPHOSPHAMIDE [Suspect]
     Active Substance: CYCLOPHOSPHAMIDE
     Dosage: 1500.0 MG/M2, DOSAGE FORM: NOT SPECIFIED, DURATION: 1 DAY
     Route: 065
  4. CISPLATIN [Suspect]
     Active Substance: CISPLATIN
     Indication: Plasma cell myeloma refractory
     Dosage: UNK
     Route: 065
     Dates: start: 20230310
  5. ETOPOSIDE [Suspect]
     Active Substance: ETOPOSIDE
     Indication: Plasma cell myeloma refractory
     Dosage: UNK, DOSAGE FORM: NOT SPECIFIED
     Route: 065
     Dates: start: 20230310
  6. DEXAMETHASONE [Suspect]
     Active Substance: DEXAMETHASONE
     Indication: Plasma cell myeloma refractory
     Dosage: UNK
     Route: 065
     Dates: start: 20230310
  7. DEXAMETHASONE [Suspect]
     Active Substance: DEXAMETHASONE
     Dosage: 40.0 MILLIGRAM, DOSAGE FORM: NOT SPECIFIED, DURATION: 5 DAYS
     Route: 065
  8. KYPROLIS [Suspect]
     Active Substance: CARFILZOMIB
     Indication: Plasma cell myeloma refractory
     Dosage: 36.0 MG/M2, DOSAGE FORM: POWDER FOR SOLUTION INTRAVENOUS, FOR I.V. INFUSION, SINGLE USE VIAL
     Route: 065
  9. VENCLEXTA [Suspect]
     Active Substance: VENETOCLAX
     Indication: Plasma cell myeloma refractory
     Dosage: 800.0 MILLIGRAM
     Route: 065
  10. VENCLEXTA [Suspect]
     Active Substance: VENETOCLAX
     Dosage: 400.0 MILLIGRAM
     Route: 065
  11. POMALIDOMIDE [Concomitant]
     Active Substance: POMALIDOMIDE
     Dosage: UNK
     Route: 065
  12. PREDNISONE [Concomitant]
     Active Substance: PREDNISONE
     Dosage: UNK, (DOSAGE FORM: NOT SPECIFIED)
     Route: 065

REACTIONS (10)
  - Product use in unapproved indication [Unknown]
  - Plasma cell myeloma recurrent [Recovering/Resolving]
  - Bone marrow disorder [Recovering/Resolving]
  - Off label use [Recovering/Resolving]
  - Gastrointestinal disorder [Unknown]
  - Disease progression [Unknown]
  - Cytopenia [Unknown]
  - Confusional state [Recovering/Resolving]
  - Sepsis [Recovering/Resolving]
  - Pyrexia [Recovering/Resolving]
